FAERS Safety Report 8621817-3 (Version None)
Quarter: 2012Q3

REPORT INFORMATION
  Report Type: 
  Country: None (occurrence: None)
  Receive Date: 20120821
  Receipt Date: 20120821
  Transmission Date: 20120928
  Serious: Yes (Hospitalization, Disabling)
  Sender: FDA-Public Use
  Company Number: None

PATIENT
  Age: 64 Year
  Sex: Female
  Weight: 64.4108 kg

DRUGS (1)
  1. ZOCOR [Suspect]

REACTIONS (3)
  - DYSPNOEA [None]
  - COUGH [None]
  - INTERSTITIAL LUNG DISEASE [None]
